FAERS Safety Report 24730068 (Version 1)
Quarter: 2024Q4

REPORT INFORMATION
  Report Type: Spontaneous
  Country: CZ (occurrence: CZ)
  Receive Date: 20241213
  Receipt Date: 20241213
  Transmission Date: 20250114
  Serious: Yes (Death, Other)
  Sender: AMGEN
  Company Number: CZ-AMGEN-CZESP2024242733

PATIENT
  Age: 66 Year
  Sex: Female

DRUGS (8)
  1. XGEVA [Suspect]
     Active Substance: DENOSUMAB
     Indication: Non-small cell lung cancer
     Dosage: 120 MILLIGRAM, QMO
     Route: 058
     Dates: start: 201902
  2. AFATINIB [Concomitant]
     Active Substance: AFATINIB
     Dosage: 30 MILLIGRAM, QD
     Route: 048
     Dates: start: 201903
  3. VINORELBINE [Concomitant]
     Active Substance: VINORELBINE TARTRATE
     Indication: Chemotherapy
     Dosage: 140 MILLIGRAM, QWK
     Route: 048
  4. VINORELBINE [Concomitant]
     Active Substance: VINORELBINE TARTRATE
     Dosage: 160 MILLIGRAM, QWK
     Route: 048
  5. PACLITAXEL [Concomitant]
     Active Substance: PACLITAXEL
     Indication: Chemotherapy
     Dosage: UNK
     Route: 065
  6. PEMETREXED [Concomitant]
     Active Substance: PEMETREXED
     Indication: Chemotherapy
     Dosage: UNK
     Route: 065
  7. CALCIUM [Concomitant]
     Active Substance: CALCIUM
     Indication: Supplementation therapy
  8. VITAMIN D [Concomitant]
     Active Substance: VITAMIN D NOS
     Indication: Supplementation therapy
     Dosage: UNK
     Route: 065

REACTIONS (2)
  - Death [Fatal]
  - Metastases to lung [Unknown]

NARRATIVE: CASE EVENT DATE: 20200101
